FAERS Safety Report 7603510-9 (Version None)
Quarter: 2011Q3

REPORT INFORMATION
  Report Type: 
  Country: None (occurrence: None)
  Receive Date: 20110712
  Receipt Date: 20110628
  Transmission Date: 20111222
  Serious: Yes (Other)
  Sender: FDA-Public Use
  Company Number: CA-JNJFOC-20110700750

PATIENT
  Sex: Female
  Weight: 73 kg

DRUGS (6)
  1. REACTINE [Concomitant]
     Indication: ECZEMA
  2. ELOCON [Concomitant]
     Indication: HYPERSENSITIVITY
  3. REACTINE [Concomitant]
     Indication: HYPERSENSITIVITY
  4. REMICADE [Suspect]
     Route: 042
     Dates: start: 20110628
  5. ELOCON [Concomitant]
     Indication: ECZEMA
  6. REMICADE [Suspect]
     Indication: COLITIS ULCERATIVE
     Route: 042
     Dates: start: 20080911

REACTIONS (3)
  - TACHYARRHYTHMIA [None]
  - GOITRE [None]
  - HYPERTHYROIDISM [None]
